FAERS Safety Report 22270092 (Version 1)
Quarter: 2023Q2

REPORT INFORMATION
  Report Type: Spontaneous
  Country: US (occurrence: None)
  Receive Date: 20230428
  Receipt Date: 20230428
  Transmission Date: 20230722
  Serious: Yes (Hospitalization)
  Sender: FDA-Public Use
  Company Number: None

PATIENT
  Sex: Male

DRUGS (1)
  1. ABIRATERONE [Suspect]
     Active Substance: ABIRATERONE
     Dosage: FREQUENCY : DAILY;?
     Route: 048

REACTIONS (7)
  - Intestinal haemorrhage [None]
  - Therapy interrupted [None]
  - Osteoporosis [None]
  - Stress fracture [None]
  - Diverticulitis [None]
  - Osteoporosis [None]
  - Haemoglobin decreased [None]
